FAERS Safety Report 8031259 (Version 2)
Quarter: 2012Q4

REPORT INFORMATION
  Report Type: Spontaneous
  Country: GB (occurrence: None)
  Receive Date: 20110624
  Receipt Date: 20121123
  Transmission Date: 20130627
  Serious: Yes (Hospitalization)
  Sender: FDA-Public Use
  Company Number: 2011-1808

PATIENT
  Age: 16 Year
  Sex: Male
  Weight: 36.8 kg

DRUGS (4)
  1. INCRELEX [Suspect]
     Indication: GROWTH RETARDATION
     Dosage: 0.08 MG/KG (0.04 MG/KG, 2 IN 1 D), SUBCUTANEOUS
     Route: 058
     Dates: start: 20101110, end: 20110518
  2. ANTIBIOTICS (ANTIBIOTICS) [Concomitant]
  3. THYROID HORMONE (THYROID HORMONE) [Concomitant]
  4. MEDICATION FOR DIABETES (DRUG USED IN DIABETES) [Concomitant]

REACTIONS (6)
  - Splenomegaly [None]
  - Hypersplenism [None]
  - Condition aggravated [None]
  - Splenic infarction [None]
  - Abdominal pain [None]
  - Apoptosis [None]
